FAERS Safety Report 5499882-4 (Version None)
Quarter: 2007Q4

REPORT INFORMATION
  Report Type: 
  Country: None (occurrence: None)
  Receive Date: 20071026
  Receipt Date: 20071015
  Transmission Date: 20080405
  Serious: Yes (Other)
  Sender: FDA-Public Use
  Company Number: JP-PFIZER INC-2007086916

PATIENT
  Age: 3 Year
  Sex: Male

DRUGS (1)
  1. ZITHROMAX [Suspect]

REACTIONS (2)
  - BLADDER DISTENSION [None]
  - URINARY RETENTION [None]
